FAERS Safety Report 15304197 (Version 1)
Quarter: 2018Q3

REPORT INFORMATION
  Report Type: Spontaneous
  Country: US (occurrence: US)
  Receive Date: 20180809
  Receipt Date: 20180809
  Transmission Date: 20181010
  Serious: Yes (Life-Threatening, Hospitalization, Disabling, Other)
  Sender: FDA-Public Use
  Company Number: None

PATIENT
  Age: 54 Year
  Sex: Female
  Weight: 90 kg

DRUGS (11)
  1. MULTIVITAMIN [Concomitant]
     Active Substance: VITAMINS
  2. WHEELCHAIR [Concomitant]
     Active Substance: DEVICE
  3. NEURONTIN [Concomitant]
     Active Substance: GABAPENTIN
  4. LASIX [Concomitant]
     Active Substance: FUROSEMIDE
  5. PROLIA [Suspect]
     Active Substance: DENOSUMAB
     Indication: OSTEOPOROSIS
     Route: 030
     Dates: start: 20171130, end: 20171130
  6. BIOTIN [Concomitant]
     Active Substance: BIOTIN
  7. LISINOPRIL. [Concomitant]
     Active Substance: LISINOPRIL
  8. FLEXERIL [Concomitant]
     Active Substance: CYCLOBENZAPRINE HYDROCHLORIDE
  9. IRON [Concomitant]
     Active Substance: IRON
  10. PRISTIQ EXTENDED?RELEASE [Concomitant]
     Active Substance: DESVENLAFAXINE SUCCINATE
  11. VITAMIN D [Concomitant]
     Active Substance: CHOLECALCIFEROL

REACTIONS (6)
  - Wound [None]
  - Peripheral swelling [None]
  - Eye infection [None]
  - Impaired healing [None]
  - Leg amputation [None]
  - Dermatitis [None]

NARRATIVE: CASE EVENT DATE: 20171130
